FAERS Safety Report 25896081 (Version 1)
Quarter: 2025Q4

REPORT INFORMATION
  Report Type: Spontaneous
  Country: US (occurrence: None)
  Receive Date: 20251007
  Receipt Date: 20251007
  Transmission Date: 20260119
  Serious: Yes (Other)
  Sender: FDA-CTU
  Company Number: None

PATIENT
  Age: 25 Year
  Sex: Female
  Weight: 67.5 kg

DRUGS (15)
  1. TREMFYA [Suspect]
     Active Substance: GUSELKUMAB
     Indication: Crohn^s disease
     Dosage: OTHER QUANTITY : 2 INJECTION(S);?OTHER FREQUENCY : ONCE EVERY 4 WEEKS;?
     Route: 058
     Dates: start: 20250911
  2. TREMFYA [Concomitant]
     Active Substance: GUSELKUMAB
  3. METOPROLOL [Concomitant]
     Active Substance: METOPROLOL
  4. SERTRALINE [Concomitant]
     Active Substance: SERTRALINE HYDROCHLORIDE
  5. TRETINOIN [Concomitant]
     Active Substance: TRETINOIN
  6. NEXPLANON [Concomitant]
     Active Substance: ETONOGESTREL
  7. ETONOGESTREL [Concomitant]
     Active Substance: ETONOGESTREL
  8. Emzahh Norethindrone [Concomitant]
  9. FLUCONAZOLE [Concomitant]
     Active Substance: FLUCONAZOLE
  10. CLOTRIMAZOLE [Concomitant]
     Active Substance: CLOTRIMAZOLE
  11. CLINDAMYCIN PHOSPHATE [Concomitant]
     Active Substance: CLINDAMYCIN PHOSPHATE
  12. DIETARY SUPPLEMENT [Concomitant]
     Active Substance: DIETARY SUPPLEMENT
  13. Oragain Whey Protein [Concomitant]
  14. B12 [Concomitant]
  15. VITAMIN D3 [Suspect]
     Active Substance: CHOLECALCIFEROL

REACTIONS (11)
  - Fatigue [None]
  - Headache [None]
  - Nausea [None]
  - Balance disorder [None]
  - Frequent bowel movements [None]
  - Defaecation urgency [None]
  - Faeces discoloured [None]
  - Upper respiratory tract infection [None]
  - Campylobacter test positive [None]
  - Gastroenteritis Escherichia coli [None]
  - Immunosuppression [None]

NARRATIVE: CASE EVENT DATE: 20251003
